FAERS Safety Report 7441741-1 (Version None)
Quarter: 2011Q2

REPORT INFORMATION
  Report Type: 
  Country: None (occurrence: None)
  Receive Date: 20110428
  Receipt Date: 20110419
  Transmission Date: 20111010
  Serious: Yes (Disabling)
  Sender: FDA-Public Use
  Company Number: JP-ASTRAZENECA-2011SE21578

PATIENT
  Age: 24618 Day
  Sex: Male
  Weight: 54 kg

DRUGS (7)
  1. IRESSA [Suspect]
     Indication: LUNG ADENOCARCINOMA
     Route: 048
     Dates: start: 20100906, end: 20110104
  2. TANATRIL [Concomitant]
     Indication: HYPERTENSION
     Route: 048
     Dates: start: 20100720, end: 20100820
  3. IRESSA [Suspect]
     Route: 048
     Dates: start: 20110105, end: 20110311
  4. PACLITAXEL [Suspect]
     Indication: LUNG ADENOCARCINOMA
     Route: 065
     Dates: start: 20100714, end: 20100804
  5. CARBOPLATIN [Suspect]
     Indication: LUNG ADENOCARCINOMA
     Route: 065
     Dates: start: 20100714, end: 20100804
  6. ZESTRIL [Concomitant]
     Indication: HYPERTENSION
     Route: 048
     Dates: start: 20040101, end: 20100719
  7. ZESTRIL [Concomitant]
     Route: 048
     Dates: start: 20100820, end: 20110323

REACTIONS (3)
  - PRURITUS [None]
  - LEUKOENCEPHALOPATHY [None]
  - RASH [None]
